FAERS Safety Report 10181407 (Version 4)
Quarter: 2014Q3

REPORT INFORMATION
  Report Type: Report from Study
  Country: CA (occurrence: CA)
  Receive Date: 20140519
  Receipt Date: 20140715
  Transmission Date: 20150326
  Serious: Yes (Hospitalization, Other)
  Sender: FDA-Public Use
  Company Number: CA-BRISTOL-MYERS SQUIBB COMPANY-20640785

PATIENT
  Age: 72 Year
  Sex: Female

DRUGS (9)
  1. ORENCIA [Suspect]
     Active Substance: ABATACEPT
     Indication: RHEUMATOID ARTHRITIS
     Route: 042
     Dates: start: 20130422
  2. CITALOPRAM [Concomitant]
     Active Substance: CITALOPRAM HYDROBROMIDE
  3. FOLIC ACID. [Concomitant]
     Active Substance: FOLIC ACID
  4. SULFASALAZINE. [Concomitant]
     Active Substance: SULFASALAZINE
  5. PREDNISONE. [Concomitant]
     Active Substance: PREDNISONE
  6. ZOPICLONE [Concomitant]
     Active Substance: ZOPICLONE
  7. PANTOPRAZOLE [Concomitant]
     Active Substance: PANTOPRAZOLE SODIUM
  8. GABAPENTIN. [Concomitant]
     Active Substance: GABAPENTIN
  9. QUETIAPINE [Concomitant]
     Active Substance: QUETIAPINE

REACTIONS (7)
  - Blood pressure increased [Unknown]
  - Peripheral swelling [Unknown]
  - Fatigue [Unknown]
  - Dyspnoea [Unknown]
  - Cataract [Unknown]
  - Headache [Recovered/Resolved]
  - Depression [Unknown]

NARRATIVE: CASE EVENT DATE: 201404
